FAERS Safety Report 6745721-0 (Version None)
Quarter: 2010Q2

REPORT INFORMATION
  Report Type: 
  Country: None (occurrence: None)
  Receive Date: 20100528
  Receipt Date: 20100317
  Transmission Date: 20101027
  Serious: Yes (Hospitalization)
  Sender: FDA-Public Use
  Company Number: CH-KINGPHARMUSA00001-K201000649

PATIENT
  Age: 84 Year
  Sex: Male

DRUGS (11)
  1. FLECTOR [Suspect]
     Indication: ARTHRALGIA
     Dosage: 1 PATCH, QOD
     Route: 061
     Dates: start: 20091101, end: 20091204
  2. MARCUMAR [Suspect]
     Indication: ATRIAL FIBRILLATION
     Dosage: 1 DF, QD, PRN
     Route: 048
     Dates: end: 20091201
  3. FERRO SANOL [Concomitant]
     Route: 048
  4. OMEZOL [Concomitant]
     Route: 048
  5. ROCALTROL [Concomitant]
     Route: 048
  6. NORVASC [Concomitant]
     Route: 048
  7. NEPHROTRANS [Concomitant]
     Route: 048
  8. TORASEM [Concomitant]
     Route: 048
  9. ZYLORIC [Concomitant]
     Route: 048
  10. XYZAL [Concomitant]
     Route: 048
  11. RECORMON [Concomitant]

REACTIONS (7)
  - ANAEMIA [None]
  - DUODENITIS HAEMORRHAGIC [None]
  - HAEMOGLOBIN DECREASED [None]
  - HAEMORRHAGIC ANAEMIA [None]
  - HAEMORRHAGIC EROSIVE GASTRITIS [None]
  - HIATUS HERNIA [None]
  - INTERNATIONAL NORMALISED RATIO INCREASED [None]
